FAERS Safety Report 9094918 (Version 1)
Quarter: 2013Q1

REPORT INFORMATION
  Report Type: Spontaneous
  Country: US (occurrence: None)
  Receive Date: 20130214
  Receipt Date: 20130214
  Transmission Date: 20140127
  Serious: No
  Sender: FDA-Public Use
  Company Number: None

PATIENT
  Age: 9 Year
  Sex: Male

DRUGS (1)
  1. ENBREL [Suspect]
     Indication: PSORIATIC ARTHROPATHY
     Dosage: 0.7 ML (17.5  MG)BIW
     Route: 058
     Dates: start: 20130204

REACTIONS (2)
  - Hypoaesthesia [None]
  - Pyrexia [None]
